FAERS Safety Report 19766675 (Version 1)
Quarter: 2021Q3

REPORT INFORMATION
  Report Type: Report from Study
  Country: CA (occurrence: CA)
  Receive Date: 20210830
  Receipt Date: 20210830
  Transmission Date: 20211014
  Serious: Yes (Other)
  Sender: FDA-Public Use
  Company Number: CA-UCBSA-2021013956

PATIENT
  Sex: Female

DRUGS (2)
  1. LEVETIRACETAM. [Suspect]
     Active Substance: LEVETIRACETAM
     Indication: PARTIAL SEIZURES
     Dosage: UNK
  2. BRIVLERA [Suspect]
     Active Substance: BRIVARACETAM
     Indication: PARTIAL SEIZURES
     Dosage: 50 MILLIGRAM, 2X/DAY (BID)
     Dates: start: 202006

REACTIONS (6)
  - Loss of personal independence in daily activities [Unknown]
  - Anxiety [Unknown]
  - Status epilepticus [Not Recovered/Not Resolved]
  - Adverse drug reaction [Unknown]
  - Disturbance in attention [Unknown]
  - Hypokinesia [Unknown]
